FAERS Safety Report 22637837 (Version 1)
Quarter: 2023Q2

REPORT INFORMATION
  Report Type: Spontaneous
  Country: JP (occurrence: JP)
  Receive Date: 20230626
  Receipt Date: 20230626
  Transmission Date: 20230721
  Serious: Yes (Death, Life-Threatening, Hospitalization, Other)
  Sender: FDA-Public Use
  Company Number: JP-ONO-2023JP016053

PATIENT
  Age: 81 Year
  Sex: Male

DRUGS (7)
  1. OPDIVO [Suspect]
     Active Substance: NIVOLUMAB
     Indication: Transitional cell carcinoma
     Dosage: 240 MG
     Route: 041
     Dates: start: 20230214, end: 20230228
  2. OPDIVO [Suspect]
     Active Substance: NIVOLUMAB
     Dosage: 2ND ADMINISTRATION
     Route: 041
     Dates: start: 20230228
  3. ASPIRIN [Concomitant]
     Active Substance: ASPIRIN
     Indication: Product used for unknown indication
     Dosage: UNK
     Route: 048
  4. CANDESARTAN [Concomitant]
     Active Substance: CANDESARTAN
     Indication: Product used for unknown indication
     Dosage: UNK
     Route: 048
  5. NIFEDIPINE [Concomitant]
     Active Substance: NIFEDIPINE
     Indication: Product used for unknown indication
     Dosage: CR
     Route: 048
  6. SILODOSIN OD [Concomitant]
     Indication: Product used for unknown indication
     Dosage: UNK
     Route: 048
  7. VIBEGRON [Concomitant]
     Active Substance: VIBEGRON
     Indication: Product used for unknown indication
     Dosage: UNK
     Route: 048

REACTIONS (2)
  - Immune-mediated myositis [Fatal]
  - Immune-mediated hepatic disorder [Fatal]

NARRATIVE: CASE EVENT DATE: 20230314
